FAERS Safety Report 4708855-8 (Version None)
Quarter: 2005Q3

REPORT INFORMATION
  Report Type: 
  Country: None (occurrence: None)
  Receive Date: 20050705
  Receipt Date: 20050624
  Transmission Date: 20060218
  Serious: Yes (Death, Life-Threatening, Other)
  Sender: FDA-Public Use
  Company Number: 2005FR-00035

PATIENT
  Age: 71 Year
  Sex: Male
  Weight: 57 kg

DRUGS (4)
  1. ASPIRIN [Suspect]
     Dosage: 75 MG, ONCE DIALY, ORAL
     Route: 048
     Dates: end: 20050609
  2. FENOFIBRATE [Concomitant]
  3. ISOSORBIDE MONONITRATE [Concomitant]
  4. AMLODIPINE [Concomitant]

REACTIONS (2)
  - HAEMATEMESIS [None]
  - OESOPHAGEAL ULCER [None]
